FAERS Safety Report 5042623-5 (Version None)
Quarter: 2006Q2

REPORT INFORMATION
  Report Type: 
  Country: None (occurrence: None)
  Receive Date: 20060627
  Receipt Date: 20060614
  Transmission Date: 20061013
  Serious: Yes (Other)
  Sender: FDA-Public Use
  Company Number: 2006076297

PATIENT
  Age: 60 Year
  Sex: Male

DRUGS (6)
  1. LIPITOR [Suspect]
     Indication: BLOOD CHOLESTEROL INCREASED
     Dosage: 20 MG (20 MG, 1 IN 1 D)
     Dates: start: 20030101, end: 20060601
  2. INSULIN [Concomitant]
  3. ATACAND [Concomitant]
  4. OROXINE (LEVOTHYROXINE SODIUM) [Concomitant]
  5. ASPIRIN [Concomitant]
  6. DRUGS FOR TREATMENT OF PEPTIC ULCER [Concomitant]

REACTIONS (3)
  - CARDIOMYOPATHY [None]
  - PERIARTHRITIS [None]
  - SCAR [None]
